FAERS Safety Report 6086626-0 (Version None)
Quarter: 2009Q1

REPORT INFORMATION
  Report Type: 
  Country: None (occurrence: None)
  Receive Date: 20090223
  Receipt Date: 20090211
  Transmission Date: 20090719
  Serious: Yes (Other)
  Sender: FDA-Public Use
  Company Number: AU-AMGEN-US333842

PATIENT
  Sex: Male

DRUGS (3)
  1. ENBREL [Suspect]
     Indication: ANKYLOSING SPONDYLITIS
     Dosage: 25MG 2 VIALS ONCE A WEEK
     Route: 058
     Dates: end: 20090207
  2. LEXAPRO [Interacting]
     Dosage: UNKNOWN
     Route: 065
  3. LITHIUM [Concomitant]
     Dosage: UNKNOWN
     Route: 065

REACTIONS (6)
  - BLEEDING TIME PROLONGED [None]
  - DRUG INTERACTION [None]
  - HEADACHE [None]
  - MOUTH ULCERATION [None]
  - PLATELET COUNT DECREASED [None]
  - RESPIRATORY TRACT INFECTION [None]
